FAERS Safety Report 5968839-9 (Version None)
Quarter: 2008Q4

REPORT INFORMATION
  Report Type: 
  Country: None (occurrence: None)
  Receive Date: 20081126
  Receipt Date: 20081107
  Transmission Date: 20090506
  Serious: Yes (Hospitalization)
  Sender: FDA-Public Use
  Company Number: GB-ELI_LILLY_AND_COMPANY-GB200809000021

PATIENT
  Sex: Male
  Weight: 127 kg

DRUGS (6)
  1. BYETTA [Suspect]
     Dosage: 5 UG, UNKNOWN
     Route: 058
     Dates: start: 20070815, end: 20070816
  2. BYETTA [Suspect]
     Dosage: 5 UG, UNKNOWN
     Route: 058
     Dates: start: 20081104, end: 20081104
  3. CIALIS [Concomitant]
     Indication: ERECTILE DYSFUNCTION
     Dosage: 4 TABLETS MONTHLY
     Route: 065
  4. LEVOTHYROXINE SODIUM [Concomitant]
     Indication: HYPOTHYROIDISM
     Dosage: UNK, UNKNOWN
     Route: 065
  5. PERINDOPRIL [Concomitant]
     Indication: HYPERTENSION
     Dosage: 4 MG, UNKNOWN
     Route: 048
  6. SIMVASTATIN [Concomitant]
     Indication: HYPERCHOLESTEROLAEMIA
     Dosage: 40 MG, UNKNOWN
     Route: 048

REACTIONS (4)
  - BLOOD KETONE BODY [None]
  - DEHYDRATION [None]
  - NAUSEA [None]
  - VOMITING [None]
